FAERS Safety Report 16934397 (Version 1)
Quarter: 2019Q4

REPORT INFORMATION
  Report Type: Spontaneous
  Country: US (occurrence: US)
  Receive Date: 20191018
  Receipt Date: 20191018
  Transmission Date: 20200122
  Serious: Yes (Other)
  Sender: FDA-Public Use
  Company Number: US-HORIZON-KRY-0867-2019

PATIENT
  Age: 50 Year
  Sex: Male

DRUGS (1)
  1. KRYSTEXXA [Suspect]
     Active Substance: PEGLOTICASE
     Indication: PRODUCT USED FOR UNKNOWN INDICATION

REACTIONS (7)
  - Heart rate increased [Unknown]
  - Contraindicated product administered [Unknown]
  - Glucose-6-phosphate dehydrogenase deficiency [Unknown]
  - Chromaturia [Unknown]
  - Confusional state [Unknown]
  - Dyspnoea [Unknown]
  - Chest pain [Unknown]
